FAERS Safety Report 14434666 (Version 1)
Quarter: 2018Q1

REPORT INFORMATION
  Report Type: Report from Study
  Country: JP (occurrence: JP)
  Receive Date: 20180124
  Receipt Date: 20180124
  Transmission Date: 20180509
  Serious: Yes (Death, Life-Threatening, Other)
  Sender: FDA-Public Use
  Company Number: JP-ROCHE-1747706

PATIENT
  Age: 75 Year
  Sex: Male

DRUGS (5)
  1. DOCETAXEL. [Suspect]
     Active Substance: DOCETAXEL
     Indication: NON-SMALL CELL LUNG CANCER
     Route: 041
     Dates: start: 20160314, end: 20160314
  2. BEVACIZUMAB. [Suspect]
     Active Substance: BEVACIZUMAB
     Indication: NON-SMALL CELL LUNG CANCER
     Route: 041
     Dates: start: 20160314, end: 20160425
  3. NIVOLUMAB [Suspect]
     Active Substance: NIVOLUMAB
     Indication: NON-SMALL CELL LUNG CANCER
     Route: 065
  4. DOCETAXEL. [Suspect]
     Active Substance: DOCETAXEL
     Indication: NON-SMALL CELL LUNG CANCER
     Route: 041
     Dates: start: 20160404, end: 20160425
  5. DOCETAXEL. [Concomitant]
     Active Substance: DOCETAXEL

REACTIONS (9)
  - Peritonitis [Unknown]
  - Large intestine perforation [Recovering/Resolving]
  - Neutrophil count decreased [Recovered/Resolved]
  - Hyperkalaemia [Unknown]
  - Disease progression [Fatal]
  - Febrile neutropenia [Unknown]
  - Small cell lung cancer [Unknown]
  - White blood cell count decreased [Unknown]
  - Large intestine perforation [Unknown]

NARRATIVE: CASE EVENT DATE: 20160322
